FAERS Safety Report 8533141-8 (Version None)
Quarter: 2012Q3

REPORT INFORMATION
  Report Type: 
  Country: None (occurrence: None)
  Receive Date: 20120724
  Receipt Date: 20120712
  Transmission Date: 20120928
  Serious: Yes (Death, Hospitalization, Other)
  Sender: FDA-Public Use
  Company Number: US-BRISTOL-MYERS SQUIBB COMPANY-16556763

PATIENT
  Age: 77 Year
  Sex: Male
  Weight: 72 kg

DRUGS (7)
  1. METOPROLOL SUCCINATE [Concomitant]
  2. PRILOSEC [Concomitant]
  3. DILAUDID [Concomitant]
  4. COUMADIN [Concomitant]
  5. YERVOY [Suspect]
     Indication: MALIGNANT MELANOMA
     Dosage: 3MG/KG-EVERY 21DAYS
     Route: 042
     Dates: start: 20120209, end: 20120424
  6. DECADRON [Concomitant]
  7. OXYCONTIN [Concomitant]

REACTIONS (11)
  - METASTATIC MALIGNANT MELANOMA [None]
  - HYPOPHAGIA [None]
  - CHEST PAIN [None]
  - NEOPLASM MALIGNANT [None]
  - PAIN [None]
  - CONSTIPATION [None]
  - RASH [None]
  - DIARRHOEA [None]
  - NEOPLASM PROGRESSION [None]
  - DEHYDRATION [None]
  - ABDOMINAL PAIN [None]
